FAERS Safety Report 7291085-6 (Version None)
Quarter: 2011Q1

REPORT INFORMATION
  Report Type: 
  Country: None (occurrence: None)
  Receive Date: 20110214
  Receipt Date: 20110204
  Transmission Date: 20110831
  Serious: Yes (Other)
  Sender: FDA-Public Use
  Company Number: NL-TEVA-253590ISR

PATIENT
  Sex: Male

DRUGS (6)
  1. PREDNISOLONE [Suspect]
     Indication: PROSTATE CANCER METASTATIC
     Route: 048
     Dates: start: 20100115
  2. CLONIDINE [Concomitant]
     Indication: HOT FLUSH
     Dates: start: 20100907, end: 20100707
  3. GOSERELIN [Concomitant]
     Indication: HORMONE THERAPY
     Route: 058
     Dates: start: 20090609
  4. ABIRATERONE ACETATE- BLINDED (ABIRATERONE ACETATE) [Suspect]
     Indication: PROSTATE CANCER METASTATIC
     Route: 048
     Dates: start: 20100115, end: 20100421
  5. NADROPARIN CALCIUM [Concomitant]
     Route: 058
     Dates: start: 20080401
  6. ABIRATERONE ACETATE- BLINDED (ABIRATERONE ACETATE) [Suspect]
     Dates: end: 20100826

REACTIONS (3)
  - HEPATITIS TOXIC [None]
  - ASPARTATE AMINOTRANSFERASE INCREASED [None]
  - ALANINE AMINOTRANSFERASE INCREASED [None]
